FAERS Safety Report 7440206-0 (Version None)
Quarter: 2011Q2

REPORT INFORMATION
  Report Type: 
  Country: None (occurrence: None)
  Receive Date: 20110427
  Receipt Date: 20110419
  Transmission Date: 20111010
  Serious: Yes (Other)
  Sender: FDA-Public Use
  Company Number: US-BAXTER-2011BH012553

PATIENT

DRUGS (12)
  1. CISPLATIN [Suspect]
     Indication: BILE DUCT CANCER
     Route: 042
  2. MIDAZOLAM [Concomitant]
     Indication: ANAESTHESIA
     Route: 042
  3. FENTANYL [Concomitant]
     Indication: ANAESTHESIA
     Route: 042
  4. POLYVINYL ALCOHOL [Suspect]
     Indication: BILE DUCT CANCER
     Route: 042
  5. ETHIODOL [Suspect]
     Indication: BILE DUCT CANCER
     Route: 042
  6. LIDOCAINE [Concomitant]
     Indication: LOCAL ANAESTHESIA
     Route: 065
  7. NORMAL SALINE [Concomitant]
     Indication: PRODUCT USED FOR UNKNOWN INDICATION
     Route: 065
  8. ONDANSETRON [Concomitant]
     Indication: PROPHYLAXIS
     Route: 065
  9. CEFAZOLIN [Concomitant]
     Indication: PRODUCT USED FOR UNKNOWN INDICATION
     Route: 065
  10. DOXORUBICIN [Suspect]
     Indication: BILE DUCT CANCER
     Route: 042
  11. DEXAMETHASONE [Concomitant]
     Indication: PRODUCT USED FOR UNKNOWN INDICATION
     Route: 065
  12. MITOMYCIN [Suspect]
     Indication: BILE DUCT CANCER
     Route: 042

REACTIONS (1)
  - PULMONARY INFARCTION [None]
